FAERS Safety Report 13685013 (Version 6)
Quarter: 2017Q4

REPORT INFORMATION
  Report Type: Spontaneous
  Country: CA (occurrence: CA)
  Receive Date: 20170623
  Receipt Date: 20171019
  Transmission Date: 20180320
  Serious: Yes (Other)
  Sender: FDA-Public Use
  Company Number: CA-PFIZER INC-2017272996

PATIENT
  Age: 67 Year
  Sex: Female

DRUGS (13)
  1. XELJANZ [Suspect]
     Active Substance: TOFACITINIB CITRATE
     Indication: RHEUMATOID ARTHRITIS
     Dosage: 5 MG, TWICE A DAY
     Route: 048
     Dates: start: 20170618, end: 20170914
  2. FLUOXETINE [Concomitant]
     Active Substance: FLUOXETINE HYDROCHLORIDE
     Dosage: 20 MG, DAILY AM
     Route: 048
  3. RISEDRONATE APOTEX [Concomitant]
     Dosage: 35 MG, WEEKLY
     Route: 048
  4. METHOTREXATE SODIUM. [Suspect]
     Active Substance: METHOTREXATE SODIUM
     Dosage: 25 MG, WEEKLY
     Route: 048
     Dates: start: 201506
  5. BROMAZEPAM TEVA [Concomitant]
     Dosage: 3 MG, TWICE A DAY, AM AND PM, AS NEEDED
     Route: 048
  6. PANTOPRAZOLE SODIUM. [Concomitant]
     Active Substance: PANTOPRAZOLE SODIUM
     Dosage: 40 MG, DAILY AM
     Route: 048
  7. FLUOXETINE TEVA [Concomitant]
     Active Substance: FLUOXETINE HYDROCHLORIDE
     Dosage: 10 MG, DAILY AM
     Route: 048
  8. METHOTREXATE SODIUM. [Suspect]
     Active Substance: METHOTREXATE SODIUM
     Indication: RHEUMATOID ARTHRITIS
     Dosage: UNK
     Route: 048
     Dates: start: 201404, end: 201506
  9. BISOPROLOL TEVA [Concomitant]
     Active Substance: BISOPROLOL
     Dosage: 5 MG, DAILY AM
     Route: 048
  10. FOLIC ACID. [Concomitant]
     Active Substance: FOLIC ACID
     Dosage: 5 MG, TWICE WEEKLY (DAY BEFORE AND AFTER METHOTREXATE)
     Route: 048
  11. ATASOL [Concomitant]
     Active Substance: ACETAMINOPHEN
     Dosage: UNK, AS NEEDED
     Route: 048
  12. XARELTO [Concomitant]
     Active Substance: RIVAROXABAN
     Dosage: 20 MG, DAILY PM
     Route: 048
  13. VITAMIN D [Concomitant]
     Active Substance: CHOLECALCIFEROL
     Dosage: 10000 UI, WEEKLY
     Route: 048

REACTIONS (7)
  - Eye haemorrhage [Unknown]
  - Haematoma [Unknown]
  - Swelling [Not Recovered/Not Resolved]
  - Pain in extremity [Recovering/Resolving]
  - Fall [Unknown]
  - Confusional state [Not Recovered/Not Resolved]
  - Contusion [Not Recovered/Not Resolved]

NARRATIVE: CASE EVENT DATE: 20170618
